FAERS Safety Report 5860489-8 (Version None)
Quarter: 2008Q3

REPORT INFORMATION
  Report Type: 
  Country: None (occurrence: None)
  Receive Date: 20080827
  Receipt Date: 20070924
  Transmission Date: 20090109
  Serious: No
  Sender: FDA-Public Use
  Company Number: US-ABBOTT-07P-163-0418459-00

PATIENT
  Sex: Male
  Weight: 85.352 kg

DRUGS (7)
  1. NIASPAN [Suspect]
     Indication: BLOOD CHOLESTEROL
     Dosage: WHITE
     Route: 048
     Dates: start: 20061101, end: 20061101
  2. NIASPAN [Suspect]
     Route: 048
     Dates: start: 20070701
  3. ALLOPURINOL [Concomitant]
     Indication: DRUG USE FOR UNKNOWN INDICATION
  4. LANTUS [Concomitant]
     Indication: DIABETES MELLITUS
  5. COUMAREDIGEN [Concomitant]
     Indication: DRUG USE FOR UNKNOWN INDICATION
  6. MESALAMINE [Concomitant]
     Indication: DRUG USE FOR UNKNOWN INDICATION
  7. ESOMEPRAZOLE MAGNESIUM [Concomitant]
     Indication: DRUG USE FOR UNKNOWN INDICATION

REACTIONS (4)
  - LIP DISCOLOURATION [None]
  - PAIN [None]
  - SKIN DISCOLOURATION [None]
  - TREMOR [None]
